FAERS Safety Report 16952046 (Version 8)
Quarter: 2020Q3

REPORT INFORMATION
  Report Type: Report from Study
  Country: US (occurrence: US)
  Receive Date: 20191023
  Receipt Date: 20200823
  Transmission Date: 20201102
  Serious: Yes (Hospitalization)
  Sender: FDA-Public Use
  Company Number: US-ACTELION-A-NJ2019-193320

PATIENT
  Sex: Female
  Weight: 54.42 kg

DRUGS (4)
  1. OPSUMIT [Suspect]
     Active Substance: MACITENTAN
     Indication: PULMONARY HYPERTENSION
     Dosage: 10 MG, QD
     Route: 048
  2. OFEV [Suspect]
     Active Substance: NINTEDANIB
     Indication: PRODUCT USED FOR UNKNOWN INDICATION
     Dosage: UNK
     Route: 065
  3. AMLODIPINE [Concomitant]
     Active Substance: AMLODIPINE BESYLATE
  4. TADALAFIL. [Concomitant]
     Active Substance: TADALAFIL

REACTIONS (14)
  - Nausea [Unknown]
  - Energy increased [Unknown]
  - Pain [Unknown]
  - Headache [Unknown]
  - Hospitalisation [Unknown]
  - Abdominal distension [Unknown]
  - Decreased appetite [Unknown]
  - Nasopharyngitis [Unknown]
  - Nasal congestion [Unknown]
  - Diarrhoea [Unknown]
  - Abdominal discomfort [Unknown]
  - Hypotension [Unknown]
  - Scleroderma [Unknown]
  - Dysgeusia [Unknown]
